FAERS Safety Report 9088667 (Version 1)
Quarter: 2013Q1

REPORT INFORMATION
  Report Type: Report from Study
  Country: US (occurrence: US)
  Receive Date: 20130201
  Receipt Date: 20130201
  Transmission Date: 20140127
  Serious: No
  Sender: FDA-Public Use
  Company Number: US-ABBOTT-12P-163-1020667-00

PATIENT
  Sex: Female
  Weight: 51.7 kg

DRUGS (8)
  1. HUMIRA [Suspect]
     Indication: PSORIATIC ARTHROPATHY
     Dates: end: 201209
  2. HUMIRA [Suspect]
     Dates: start: 201211
  3. ALPHAGAN [Concomitant]
     Indication: GLAUCOMA
     Dosage: EYE DROPS
     Route: 047
     Dates: end: 201209
  4. ALPHAGAN [Concomitant]
     Dates: start: 201211
  5. BETOPTIC [Concomitant]
     Indication: GLAUCOMA
     Dosage: EYE DROPS
     Route: 047
     Dates: end: 201209
  6. BETOPTIC [Concomitant]
     Dates: start: 201211
  7. XALATAN [Concomitant]
     Indication: GLAUCOMA
     Dosage: EYE DROPS
     Route: 047
     Dates: end: 201209
  8. XALATAN [Concomitant]
     Dates: start: 201211

REACTIONS (1)
  - Haematocrit increased [Recovered/Resolved]
